FAERS Safety Report 7929032-3 (Version None)
Quarter: 2011Q4

REPORT INFORMATION
  Report Type: 
  Country: None (occurrence: None)
  Receive Date: 20111118
  Receipt Date: 20111107
  Transmission Date: 20120403
  Serious: Yes (Hospitalization)
  Sender: FDA-Public Use
  Company Number: US-ROCHE-1013001

PATIENT
  Sex: Female

DRUGS (6)
  1. HERCEPTIN [Suspect]
     Indication: BREAST CANCER
     Dosage: OVER 90 MINS AS FIRST LOADING DOSE.
     Route: 042
  2. DOXORUBICIN HCL [Suspect]
     Indication: BREAST CANCER
     Dosage: ROUTE:IVP,ON DAY1,PER 21 DAYS FOR 4 CYCLES.
     Dates: start: 20010322
  3. PACLITAXEL [Suspect]
     Indication: BREAST CANCER
     Dosage: OVER 1 HOUR PER WEEK FOR 12 WEEKS
     Route: 042
     Dates: start: 20010322
  4. CYCLOPHOSPHAMIDE [Suspect]
     Indication: BREAST CANCER
     Dosage: OVER 30 MIN ON DAY 1, Q21D FOR 4 CYCLES
     Route: 042
     Dates: start: 20010322
  5. TAMOXIFEN CITRATE [Suspect]
     Indication: BREAST CANCER
     Dosage: FOR 5 YEARS
     Route: 048
  6. HERCEPTIN [Suspect]
     Dosage: OVER 30 MIN QW ON DAY 1, FOR 52 WEEKS STARTING ON WEEK 13

REACTIONS (3)
  - HEADACHE [None]
  - DYSPNOEA [None]
  - NON-CARDIAC CHEST PAIN [None]
